FAERS Safety Report 5627881-8 (Version None)
Quarter: 2008Q1

REPORT INFORMATION
  Report Type: 
  Country: None (occurrence: None)
  Receive Date: 20080215
  Receipt Date: 20080213
  Transmission Date: 20080703
  Serious: Yes (Hospitalization)
  Sender: FDA-Public Use
  Company Number: US-MERCK-0802USA03129

PATIENT
  Age: 46 Year
  Sex: Female

DRUGS (2)
  1. FOSAMAX [Suspect]
     Indication: OSTEOPENIA
     Route: 048
     Dates: start: 19980101, end: 20060101
  2. HORMONAL CONTRACEPTIVES (UNSPECIFIED) [Concomitant]
     Route: 065

REACTIONS (1)
  - OSTEOPOROSIS [None]
